FAERS Safety Report 10186214 (Version 1)
Quarter: 2014Q2

REPORT INFORMATION
  Report Type: Spontaneous
  Country: US (occurrence: US)
  Receive Date: 20140521
  Receipt Date: 20140521
  Transmission Date: 20141212
  Serious: Yes (Other)
  Sender: FDA-Public Use
  Company Number: US-TEVA-483327USA

PATIENT
  Age: 22 Year
  Sex: Female
  Weight: 60.84 kg

DRUGS (2)
  1. PLAN B ONE-STEP [Suspect]
     Indication: POST COITAL CONTRACEPTION
     Dosage: 1.5 MILLIGRAM DAILY;
     Route: 048
     Dates: start: 201110, end: 201110
  2. BIRTH CONTROL PILLS [Concomitant]
     Indication: CONTRACEPTION

REACTIONS (7)
  - Nephrolithiasis [Unknown]
  - Peripheral nerve injury [Unknown]
  - Cholelithiasis [Unknown]
  - Foot fracture [Unknown]
  - Dysmenorrhoea [Recovered/Resolved]
  - Metrorrhagia [Recovered/Resolved]
  - Menstruation irregular [Recovered/Resolved]
